FAERS Safety Report 7139551-8 (Version None)
Quarter: 2010Q4

REPORT INFORMATION
  Report Type: 
  Country: None (occurrence: None)
  Receive Date: 20101206
  Receipt Date: 20101130
  Transmission Date: 20110411
  Serious: Yes (Hospitalization)
  Sender: FDA-Public Use
  Company Number: FR-MERCK-1011FRA00128

PATIENT
  Age: 76 Year
  Sex: Male

DRUGS (10)
  1. PRIMAXIN [Suspect]
     Indication: PNEUMONIA ASPIRATION
     Route: 042
     Dates: start: 20100922, end: 20100925
  2. PRIMAXIN [Suspect]
     Route: 042
     Dates: start: 20100926, end: 20100929
  3. SULFAMETHOXAZOLE AND TRIMETHOPRIM [Suspect]
     Indication: SEPSIS
     Route: 042
     Dates: start: 20100925, end: 20100926
  4. SULFAMETHOXAZOLE AND TRIMETHOPRIM [Suspect]
     Route: 048
     Dates: start: 20100926, end: 20100929
  5. FLUCONAZOLE [Suspect]
     Indication: SEPSIS
     Route: 042
     Dates: start: 20100925, end: 20100926
  6. CEFOTAXIME SODIUM [Suspect]
     Indication: SEPSIS
     Route: 042
     Dates: start: 20100920, end: 20100922
  7. CEFOTAXIME SODIUM [Suspect]
     Route: 042
     Dates: start: 20100929
  8. AMIKACIN SULFATE [Concomitant]
     Indication: PNEUMONIA ASPIRATION
     Route: 065
     Dates: start: 20100922, end: 20100925
  9. AMIKACIN SULFATE [Concomitant]
     Route: 065
     Dates: start: 20100917, end: 20100919
  10. PIPERACILLIN SODIUM AND TAZOBACTAM SODIUM [Concomitant]
     Indication: SEPSIS
     Route: 042
     Dates: start: 20100917, end: 20100919

REACTIONS (3)
  - CHOLESTASIS [None]
  - CYTOLYTIC HEPATITIS [None]
  - PANCREATITIS ACUTE [None]
